FAERS Safety Report 6134230-8 (Version None)
Quarter: 2009Q1

REPORT INFORMATION
  Report Type: 
  Country: None (occurrence: None)
  Receive Date: 20090325
  Receipt Date: 20070618
  Transmission Date: 20090719
  Serious: Yes (Hospitalization)
  Sender: FDA-Public Use
  Company Number: 2007S1003882

PATIENT
  Age: 41 Year
  Sex: Female
  Weight: 70.3075 kg

DRUGS (9)
  1. PHOSPHOSODA FLAVOR NOT SPECIFIED [Suspect]
     Indication: COLONOSCOPY
     Dosage: PO
     Route: 048
     Dates: start: 20040518
  2. PRINIVIL [Concomitant]
  3. NEXIUM [Concomitant]
  4. TETRACYCLINE [Concomitant]
  5. ATIVAN [Concomitant]
  6. MIRALAX [Concomitant]
  7. ZELNORM [Concomitant]
  8. LANTUS [Concomitant]
  9. HUMALOG [Concomitant]

REACTIONS (5)
  - ANXIETY [None]
  - DEHYDRATION [None]
  - DISCOMFORT [None]
  - RENAL FAILURE CHRONIC [None]
  - RENAL TUBULAR NECROSIS [None]
